FAERS Safety Report 10640288 (Version 3)
Quarter: 2014Q4

REPORT INFORMATION
  Report Type: Spontaneous
  Country: ZA (occurrence: ZA)
  Receive Date: 20141209
  Receipt Date: 20141229
  Transmission Date: 20150529
  Serious: Yes (Death, Other)
  Sender: FDA-Public Use
  Company Number: ZA-MERCK-1412ZAF002755

PATIENT

DRUGS (1)
  1. INVANZ [Suspect]
     Active Substance: ERTAPENEM SODIUM
     Dosage: 1 G, BID

REACTIONS (4)
  - Endotracheal intubation [Unknown]
  - Inappropriate schedule of drug administration [Unknown]
  - Death [Fatal]
  - Seizure [Unknown]
